FAERS Safety Report 7021994-4 (Version None)
Quarter: 2010Q3

REPORT INFORMATION
  Report Type: 
  Country: None (occurrence: None)
  Receive Date: 20100930
  Receipt Date: 20100922
  Transmission Date: 20110219
  Serious: Yes (Hospitalization, Other)
  Sender: FDA-Public Use
  Company Number: US-US-EMD SERONO, INC.-7012090

PATIENT
  Sex: Female

DRUGS (9)
  1. REBIF [Suspect]
     Indication: MULTIPLE SCLEROSIS
     Route: 058
     Dates: start: 20100607, end: 20100701
  2. REBIF [Suspect]
     Route: 058
     Dates: start: 20100701
  3. OMEPRAZOLE [Concomitant]
     Indication: GASTROOESOPHAGEAL REFLUX DISEASE
     Route: 048
     Dates: start: 20060101
  4. CELEXA [Concomitant]
     Indication: FATIGUE
     Route: 048
     Dates: start: 20010101
  5. OXYBUTYNIN [Concomitant]
     Indication: HYPERTONIC BLADDER
     Dates: start: 20100201
  6. TIZANIDINE HCL [Concomitant]
     Indication: MUSCULAR WEAKNESS
     Dates: start: 20100101
  7. VITAMIN B-12 [Concomitant]
  8. IRON [Concomitant]
  9. PREVACID [Concomitant]

REACTIONS (5)
  - CARCINOID TUMOUR OF THE DUODENUM [None]
  - GASTROINTESTINAL INFLAMMATION [None]
  - GASTROINTESTINAL STROMAL TUMOUR [None]
  - INTESTINAL CYST [None]
  - SCAR [None]
